FAERS Safety Report 4840895-0 (Version None)
Quarter: 2005Q4

REPORT INFORMATION
  Report Type: 
  Country: None (occurrence: None)
  Receive Date: 20051130
  Receipt Date: 20051122
  Transmission Date: 20060501
  Serious: Yes (Life-Threatening, Hospitalization)
  Sender: FDA-Public Use
  Company Number: US-SANOFI-SYNTHELABO-A03200503858

PATIENT
  Sex: Male

DRUGS (1)
  1. AMBIEN [Suspect]
     Indication: INSOMNIA
     Dosage: THIRTY 12.5 MG TABLETS OVER THREE DAYS
     Route: 048
     Dates: start: 20051117, end: 20051120

REACTIONS (2)
  - CONVULSION [None]
  - INTENTIONAL OVERDOSE [None]
